FAERS Safety Report 9004027 (Version 1)
Quarter: 2013Q1

REPORT INFORMATION
  Report Type: Spontaneous
  Country: US (occurrence: US)
  Receive Date: 20130108
  Receipt Date: 20130108
  Transmission Date: 20140127
  Serious: No
  Sender: FDA-Public Use
  Company Number: US-009507513-1301USA000311

PATIENT
  Sex: Male

DRUGS (4)
  1. PEGINTRON [Suspect]
     Indication: HEPATITIS C
     Dosage: UNK DF, UNK
     Dates: start: 20020101, end: 20020201
  2. REBETOL [Suspect]
     Indication: HEPATITIS C
     Dosage: UNK
     Dates: start: 20000101, end: 20000201
  3. REBETOL [Suspect]
     Dosage: UNK
     Dates: start: 20020101, end: 20020201
  4. INTRONA [Suspect]
     Indication: HEPATITIS C
     Dosage: UNK
     Dates: start: 20000101, end: 20000201

REACTIONS (2)
  - Drug ineffective [Unknown]
  - Therapeutic response decreased [Unknown]
